FAERS Safety Report 14662176 (Version 2)
Quarter: 2018Q2

REPORT INFORMATION
  Report Type: Report from Study
  Country: US (occurrence: US)
  Receive Date: 20180321
  Receipt Date: 20180430
  Transmission Date: 20180711
  Serious: Yes (Death)
  Sender: FDA-Public Use
  Company Number: US-CIPLA LTD.-2018US12309

PATIENT

DRUGS (6)
  1. GUADECITABINE [Suspect]
     Active Substance: GUADECITABINE
     Indication: OVARIAN CANCER RECURRENT
     Dosage: UNK, QD ON ON DAYS 1-5
     Route: 058
  2. CARBOPLATIN. [Suspect]
     Active Substance: CARBOPLATIN
     Indication: METASTASES TO PERITONEUM
     Dosage: UNK
     Route: 065
  3. PACLITAXEL. [Suspect]
     Active Substance: PACLITAXEL
     Indication: METASTASES TO PERITONEUM
  4. CARBOPLATIN. [Suspect]
     Active Substance: CARBOPLATIN
     Indication: OVARIAN CANCER RECURRENT
     Dosage: UNK, ON DAY 8 OF 28-DAY CYCLE
     Route: 042
  5. PACLITAXEL. [Suspect]
     Active Substance: PACLITAXEL
     Indication: OVARIAN CANCER RECURRENT
     Dosage: UNK
     Route: 065
  6. GUADECITABINE [Suspect]
     Active Substance: GUADECITABINE
     Indication: METASTASES TO PERITONEUM

REACTIONS (2)
  - Malignant neoplasm progression [Fatal]
  - Drug resistance [Unknown]
